FAERS Safety Report 5835660-1 (Version None)
Quarter: 2008Q3

REPORT INFORMATION
  Report Type: 
  Country: None (occurrence: None)
  Receive Date: 20080806
  Receipt Date: 20080804
  Transmission Date: 20090109
  Serious: Yes (Hospitalization)
  Sender: FDA-Public Use
  Company Number: FR-ASTRAZENECA-2008CG01176

PATIENT
  Age: 26256 Day
  Sex: Male

DRUGS (4)
  1. NEXIUM [Suspect]
     Route: 048
     Dates: start: 20080205, end: 20080301
  2. ASPIRIN [Concomitant]
     Route: 048
     Dates: start: 20080205, end: 20080301
  3. CORDARONE [Concomitant]
     Route: 048
     Dates: start: 20080218, end: 20080223
  4. POTASSIUM RICHARD [Concomitant]
     Route: 048
     Dates: start: 20080205, end: 20080301

REACTIONS (1)
  - DERMATITIS EXFOLIATIVE [None]
